FAERS Safety Report 23675214 (Version 4)
Quarter: 2025Q1

REPORT INFORMATION
  Report Type: Spontaneous
  Country: CA (occurrence: CA)
  Receive Date: 20240326
  Receipt Date: 20250201
  Transmission Date: 20250409
  Serious: Yes (Hospitalization, Disabling, Other)
  Sender: CELLTRION
  Company Number: CA-CELLTRION INC.-2022CA012360

PATIENT

DRUGS (390)
  1. ADALIMUMAB [Suspect]
     Active Substance: ADALIMUMAB
     Indication: Rheumatoid arthritis
     Route: 058
  2. ACTEMRA [Suspect]
     Active Substance: TOCILIZUMAB
     Indication: Rheumatoid arthritis
     Route: 065
  3. ACTEMRA [Suspect]
     Active Substance: TOCILIZUMAB
     Route: 042
  4. ACTEMRA [Suspect]
     Active Substance: TOCILIZUMAB
     Indication: Rheumatoid arthritis
     Route: 065
  5. ACTEMRA [Suspect]
     Active Substance: TOCILIZUMAB
     Route: 065
  6. ACTEMRA [Suspect]
     Active Substance: TOCILIZUMAB
     Route: 042
  7. ARAVA [Suspect]
     Active Substance: LEFLUNOMIDE
     Indication: Rheumatoid arthritis
     Route: 048
  8. ARAVA [Suspect]
     Active Substance: LEFLUNOMIDE
     Route: 048
  9. ARAVA [Suspect]
     Active Substance: LEFLUNOMIDE
     Route: 065
  10. ARAVA [Suspect]
     Active Substance: LEFLUNOMIDE
     Route: 048
  11. ARAVA [Suspect]
     Active Substance: LEFLUNOMIDE
     Route: 048
  12. ARAVA [Suspect]
     Active Substance: LEFLUNOMIDE
     Route: 048
  13. ASCORBIC ACID [Suspect]
     Active Substance: ASCORBIC ACID
     Indication: Product used for unknown indication
     Route: 065
  14. ASCORBIC ACID [Suspect]
     Active Substance: ASCORBIC ACID
     Route: 065
  15. ASCORBIC ACID [Suspect]
     Active Substance: ASCORBIC ACID
     Indication: Product used for unknown indication
     Route: 065
  16. ATENOLOL [Suspect]
     Active Substance: ATENOLOL
     Indication: Product used for unknown indication
     Route: 048
  17. ATENOLOL [Suspect]
     Active Substance: ATENOLOL
     Route: 048
  18. ATENOLOL [Suspect]
     Active Substance: ATENOLOL
     Route: 048
  19. ATENOLOL [Suspect]
     Active Substance: ATENOLOL
     Route: 065
  20. ATENOLOL [Suspect]
     Active Substance: ATENOLOL
     Route: 065
  21. ATENOLOL [Suspect]
     Active Substance: ATENOLOL
     Route: 065
  22. ATENOLOL [Suspect]
     Active Substance: ATENOLOL
     Route: 065
  23. ATENOLOL [Suspect]
     Active Substance: ATENOLOL
     Indication: Product used for unknown indication
     Route: 065
  24. ATENOLOL\CHLORTHALIDONE [Suspect]
     Active Substance: ATENOLOL\CHLORTHALIDONE
     Indication: Rheumatoid arthritis
     Route: 065
  25. CELECOXIB [Suspect]
     Active Substance: CELECOXIB
     Indication: Rheumatoid arthritis
     Route: 065
  26. CELECOXIB [Suspect]
     Active Substance: CELECOXIB
     Indication: Arthritis
  27. CELECOXIB [Suspect]
     Active Substance: CELECOXIB
     Indication: Rheumatoid arthritis
     Route: 048
  28. CELECOXIB [Suspect]
     Active Substance: CELECOXIB
     Indication: Arthritis
  29. ATENOLOL [Suspect]
     Active Substance: ATENOLOL
     Indication: Product used for unknown indication
     Route: 065
  30. ATENOLOL [Suspect]
     Active Substance: ATENOLOL
     Route: 065
  31. ATENOLOL [Suspect]
     Active Substance: ATENOLOL
     Route: 065
  32. ATENOLOL [Suspect]
     Active Substance: ATENOLOL
     Route: 048
  33. ATENOLOL [Suspect]
     Active Substance: ATENOLOL
     Route: 048
  34. ATENOLOL [Suspect]
     Active Substance: ATENOLOL
     Route: 048
  35. ATENOLOL [Suspect]
     Active Substance: ATENOLOL
     Indication: Product used for unknown indication
     Route: 065
  36. ATENOLOL [Suspect]
     Active Substance: ATENOLOL
     Route: 048
  37. ATENOLOL [Suspect]
     Active Substance: ATENOLOL
     Route: 065
  38. ATENOLOL [Suspect]
     Active Substance: ATENOLOL
     Route: 065
  39. ATENOLOL [Suspect]
     Active Substance: ATENOLOL
     Route: 048
  40. ATENOLOL [Suspect]
     Active Substance: ATENOLOL
     Route: 065
  41. DICLOFENAC SODIUM [Suspect]
     Active Substance: DICLOFENAC SODIUM
     Indication: Rheumatoid arthritis
     Route: 065
  42. ENBREL [Suspect]
     Active Substance: ETANERCEPT
     Indication: Rheumatoid arthritis
     Route: 058
  43. ENBREL [Suspect]
     Active Substance: ETANERCEPT
     Indication: Rheumatoid arthritis
     Route: 065
  44. ERELZI [Suspect]
     Active Substance: ETANERCEPT-SZZS
     Indication: Rheumatoid arthritis
     Route: 058
  45. ERELZI [Suspect]
     Active Substance: ETANERCEPT-SZZS
     Indication: Psoriatic arthropathy
     Route: 058
  46. ERELZI [Suspect]
     Active Substance: ETANERCEPT-SZZS
     Route: 058
  47. ERELZI [Suspect]
     Active Substance: ETANERCEPT-SZZS
     Indication: Rheumatoid arthritis
     Route: 058
  48. ERELZI [Suspect]
     Active Substance: ETANERCEPT-SZZS
     Indication: Rheumatoid arthritis
     Route: 058
  49. ERELZI [Suspect]
     Active Substance: ETANERCEPT-SZZS
     Indication: Psoriatic arthropathy
     Route: 065
  50. FERROUS FUMARATE [Suspect]
     Active Substance: FERROUS FUMARATE
     Indication: Product used for unknown indication
     Route: 065
  51. FERROUS FUMARATE [Suspect]
     Active Substance: FERROUS FUMARATE
     Indication: Product used for unknown indication
     Route: 065
  52. FERROUS FUMARATE [Suspect]
     Active Substance: FERROUS FUMARATE
     Route: 065
  53. FERROUS FUMARATE [Suspect]
     Active Substance: FERROUS FUMARATE
     Indication: Product used for unknown indication
     Route: 065
  54. FERROUS FUMARATE [Suspect]
     Active Substance: FERROUS FUMARATE
     Route: 065
  55. FERROUS FUMARATE [Suspect]
     Active Substance: FERROUS FUMARATE
     Route: 065
  56. FERROUS FUMARATE\FOLIC ACID [Suspect]
     Active Substance: FERROUS FUMARATE\FOLIC ACID
     Indication: Product used for unknown indication
     Dosage: 5 MG, 2 EVERY 1 WEEKS
     Route: 065
  57. FERROUS FUMARATE\FOLIC ACID [Suspect]
     Active Substance: FERROUS FUMARATE\FOLIC ACID
     Route: 065
  58. FERROUS FUMARATE\FOLIC ACID [Suspect]
     Active Substance: FERROUS FUMARATE\FOLIC ACID
     Route: 065
  59. FERROUS FUMARATE\FOLIC ACID [Suspect]
     Active Substance: FERROUS FUMARATE\FOLIC ACID
     Route: 065
  60. FERROUS FUMARATE\FOLIC ACID [Suspect]
     Active Substance: FERROUS FUMARATE\FOLIC ACID
     Indication: Product used for unknown indication
     Route: 065
  61. FERROUS FUMARATE\FOLIC ACID [Suspect]
     Active Substance: FERROUS FUMARATE\FOLIC ACID
     Route: 065
  62. FERROUS FUMARATE\FOLIC ACID [Suspect]
     Active Substance: FERROUS FUMARATE\FOLIC ACID
     Route: 065
  63. FOLIC ACID [Suspect]
     Active Substance: FOLIC ACID
     Indication: Product used for unknown indication
     Route: 065
  64. FOLIC ACID [Suspect]
     Active Substance: FOLIC ACID
     Route: 065
  65. FOLIC ACID [Suspect]
     Active Substance: FOLIC ACID
     Dosage: 5 MG, 2 EVERY 1 WEEK
     Route: 065
  66. FOLIC ACID [Suspect]
     Active Substance: FOLIC ACID
     Route: 065
  67. FOLIC ACID [Suspect]
     Active Substance: FOLIC ACID
     Route: 065
  68. FOLIC ACID [Suspect]
     Active Substance: FOLIC ACID
     Dosage: 5 MG, 1 EVERY 1 WEEKS
     Route: 065
  69. FOLIC ACID [Suspect]
     Active Substance: FOLIC ACID
     Dosage: 5 MG, 2 EVERY 1 WEEKS
     Route: 065
  70. FOLIC ACID [Suspect]
     Active Substance: FOLIC ACID
     Dosage: 5 MG, 2 EVERY 1 WEEKS
     Route: 065
  71. FOLIC ACID [Suspect]
     Active Substance: FOLIC ACID
     Dosage: 5 MG, 2 EVERY 1 WEEKS
     Route: 065
  72. FOLIC ACID [Suspect]
     Active Substance: FOLIC ACID
     Dosage: 5 MG, 2 EVERY 1 WEEKS
     Route: 065
  73. FOLIC ACID [Suspect]
     Active Substance: FOLIC ACID
     Dosage: 5 MG, 1 EVERY 1 WEEKS
     Route: 065
  74. FOLIC ACID [Suspect]
     Active Substance: FOLIC ACID
     Route: 065
  75. FOLIC ACID [Suspect]
     Active Substance: FOLIC ACID
     Route: 065
  76. FOLIC ACID [Suspect]
     Active Substance: FOLIC ACID
     Route: 065
  77. FOLIC ACID [Suspect]
     Active Substance: FOLIC ACID
     Route: 065
  78. FOLIC ACID [Suspect]
     Active Substance: FOLIC ACID
     Route: 065
  79. FOLIC ACID [Suspect]
     Active Substance: FOLIC ACID
     Route: 065
  80. FOLIC ACID [Suspect]
     Active Substance: FOLIC ACID
     Route: 065
  81. FOLIC ACID [Suspect]
     Active Substance: FOLIC ACID
     Route: 065
  82. FOLIC ACID [Suspect]
     Active Substance: FOLIC ACID
     Route: 065
  83. FOLIC ACID [Suspect]
     Active Substance: FOLIC ACID
     Dosage: 5 MG, 1 EVERY 1 WEEKS
     Route: 065
  84. FOLIC ACID [Suspect]
     Active Substance: FOLIC ACID
     Indication: Product used for unknown indication
     Route: 065
  85. FOLIC ACID [Suspect]
     Active Substance: FOLIC ACID
     Dosage: 5.0 MILLIGRAM, 1 EVERY 2 WEEKS
     Route: 065
  86. FOLIC ACID [Suspect]
     Active Substance: FOLIC ACID
     Indication: Product used for unknown indication
     Route: 065
  87. FOLIC ACID [Suspect]
     Active Substance: FOLIC ACID
     Route: 065
  88. HUMIRA [Suspect]
     Active Substance: ADALIMUMAB
     Indication: Rheumatoid arthritis
     Route: 058
  89. HUMIRA [Suspect]
     Active Substance: ADALIMUMAB
     Indication: Juvenile idiopathic arthritis
     Route: 058
  90. HUMIRA [Suspect]
     Active Substance: ADALIMUMAB
     Indication: Uveitis
     Route: 058
  91. HUMIRA [Suspect]
     Active Substance: ADALIMUMAB
     Indication: Product used for unknown indication
     Route: 058
  92. HUMIRA [Suspect]
     Active Substance: ADALIMUMAB
     Route: 058
  93. HYDROXYCHLOROQUINE [Suspect]
     Active Substance: HYDROXYCHLOROQUINE
     Indication: Rheumatoid arthritis
     Dosage: 40.0 MILLIGRAM, 1 EVERY 1 WEEK
     Route: 065
  94. HYDROXYCHLOROQUINE [Suspect]
     Active Substance: HYDROXYCHLOROQUINE
     Indication: Rheumatoid arthritis
     Route: 065
  95. HYDROXYCHLOROQUINE [Suspect]
     Active Substance: HYDROXYCHLOROQUINE
     Dosage: 40.0 MILLIGRAM, 1 EVERY 1 WEEK
     Route: 065
  96. HYDROXYCHLOROQUINE [Suspect]
     Active Substance: HYDROXYCHLOROQUINE
     Dosage: 400.0 MILLIGRAM, 1 EVERY 1 WEEK
     Route: 065
  97. HYDROXYCHLOROQUINE [Suspect]
     Active Substance: HYDROXYCHLOROQUINE
     Indication: Rheumatoid arthritis
  98. HYDROXYCHLOROQUINE [Suspect]
     Active Substance: HYDROXYCHLOROQUINE
     Route: 065
  99. HYDROXYCHLOROQUINE [Suspect]
     Active Substance: HYDROXYCHLOROQUINE
     Route: 065
  100. HYDROXYCHLOROQUINE [Suspect]
     Active Substance: HYDROXYCHLOROQUINE
     Route: 048
  101. HYDROXYCHLOROQUINE [Suspect]
     Active Substance: HYDROXYCHLOROQUINE
     Route: 065
  102. HYDROXYCHLOROQUINE [Suspect]
     Active Substance: HYDROXYCHLOROQUINE
     Route: 065
  103. HYDROXYCHLOROQUINE SULFATE [Suspect]
     Active Substance: HYDROXYCHLOROQUINE SULFATE
     Indication: Rheumatoid arthritis
     Route: 065
  104. HYDROXYCHLOROQUINE SULFATE [Suspect]
     Active Substance: HYDROXYCHLOROQUINE SULFATE
     Route: 065
  105. HYDROXYCHLOROQUINE SULFATE [Suspect]
     Active Substance: HYDROXYCHLOROQUINE SULFATE
     Route: 065
  106. HYDROXYCHLOROQUINE SULFATE [Suspect]
     Active Substance: HYDROXYCHLOROQUINE SULFATE
     Route: 065
  107. HYDROXYCHLOROQUINE SULFATE [Suspect]
     Active Substance: HYDROXYCHLOROQUINE SULFATE
     Route: 065
  108. HYDROXYCHLOROQUINE SULFATE [Suspect]
     Active Substance: HYDROXYCHLOROQUINE SULFATE
     Route: 065
  109. HYDROXYCHLOROQUINE SULFATE [Suspect]
     Active Substance: HYDROXYCHLOROQUINE SULFATE
     Route: 065
  110. HYDROXYCHLOROQUINE SULFATE [Suspect]
     Active Substance: HYDROXYCHLOROQUINE SULFATE
     Route: 065
  111. HYDROXYCHLOROQUINE SULFATE [Suspect]
     Active Substance: HYDROXYCHLOROQUINE SULFATE
     Route: 065
  112. HYDROXYCHLOROQUINE SULFATE [Suspect]
     Active Substance: HYDROXYCHLOROQUINE SULFATE
     Route: 065
  113. HYDROXYCHLOROQUINE SULFATE [Suspect]
     Active Substance: HYDROXYCHLOROQUINE SULFATE
     Route: 065
  114. HYDROXYCHLOROQUINE SULFATE [Suspect]
     Active Substance: HYDROXYCHLOROQUINE SULFATE
     Route: 065
  115. HYDROXYCHLOROQUINE SULFATE [Suspect]
     Active Substance: HYDROXYCHLOROQUINE SULFATE
     Route: 065
  116. HYDROXYCHLOROQUINE SULFATE [Suspect]
     Active Substance: HYDROXYCHLOROQUINE SULFATE
     Route: 065
  117. HYDROXYCHLOROQUINE SULFATE [Suspect]
     Active Substance: HYDROXYCHLOROQUINE SULFATE
     Route: 065
  118. HYDROXYCHLOROQUINE SULFATE [Suspect]
     Active Substance: HYDROXYCHLOROQUINE SULFATE
     Route: 065
  119. HYDROXYCHLOROQUINE SULFATE [Suspect]
     Active Substance: HYDROXYCHLOROQUINE SULFATE
     Route: 065
  120. HYDROXYCHLOROQUINE SULFATE [Suspect]
     Active Substance: HYDROXYCHLOROQUINE SULFATE
     Route: 065
  121. HYDROXYCHLOROQUINE SULFATE [Suspect]
     Active Substance: HYDROXYCHLOROQUINE SULFATE
     Route: 065
  122. HYDROXYCHLOROQUINE SULFATE [Suspect]
     Active Substance: HYDROXYCHLOROQUINE SULFATE
     Route: 065
  123. HYDROXYCHLOROQUINE SULFATE [Suspect]
     Active Substance: HYDROXYCHLOROQUINE SULFATE
     Route: 065
  124. HYDROXYCHLOROQUINE SULFATE [Suspect]
     Active Substance: HYDROXYCHLOROQUINE SULFATE
     Route: 065
  125. HYDROXYCHLOROQUINE SULFATE [Suspect]
     Active Substance: HYDROXYCHLOROQUINE SULFATE
     Route: 065
  126. HYDROXYCHLOROQUINE SULFATE [Suspect]
     Active Substance: HYDROXYCHLOROQUINE SULFATE
     Route: 065
  127. HYDROXYCHLOROQUINE SULFATE [Suspect]
     Active Substance: HYDROXYCHLOROQUINE SULFATE
     Route: 065
  128. HYDROXYCHLOROQUINE SULFATE [Suspect]
     Active Substance: HYDROXYCHLOROQUINE SULFATE
     Route: 065
  129. HYDROXYCHLOROQUINE SULFATE [Suspect]
     Active Substance: HYDROXYCHLOROQUINE SULFATE
     Route: 065
  130. HYDROXYCHLOROQUINE SULFATE [Suspect]
     Active Substance: HYDROXYCHLOROQUINE SULFATE
     Route: 065
  131. HYDROXYCHLOROQUINE SULFATE [Suspect]
     Active Substance: HYDROXYCHLOROQUINE SULFATE
     Route: 065
  132. HYDROXYCHLOROQUINE SULFATE [Suspect]
     Active Substance: HYDROXYCHLOROQUINE SULFATE
     Route: 065
  133. HYDROXYCHLOROQUINE SULFATE [Suspect]
     Active Substance: HYDROXYCHLOROQUINE SULFATE
     Route: 065
  134. HYDROXYCHLOROQUINE SULFATE [Suspect]
     Active Substance: HYDROXYCHLOROQUINE SULFATE
     Route: 065
  135. HYDROXYCHLOROQUINE SULFATE [Suspect]
     Active Substance: HYDROXYCHLOROQUINE SULFATE
     Route: 065
  136. HYDROXYCHLOROQUINE SULFATE [Suspect]
     Active Substance: HYDROXYCHLOROQUINE SULFATE
     Route: 065
  137. HYDROXYCHLOROQUINE SULFATE [Suspect]
     Active Substance: HYDROXYCHLOROQUINE SULFATE
     Route: 065
  138. HYDROXYCHLOROQUINE SULFATE [Suspect]
     Active Substance: HYDROXYCHLOROQUINE SULFATE
     Route: 065
  139. HYDROXYCHLOROQUINE SULFATE [Suspect]
     Active Substance: HYDROXYCHLOROQUINE SULFATE
     Route: 065
  140. HYDROXYCHLOROQUINE SULFATE [Suspect]
     Active Substance: HYDROXYCHLOROQUINE SULFATE
     Route: 065
  141. LEFLUNOMIDE [Suspect]
     Active Substance: LEFLUNOMIDE
     Indication: Rheumatoid arthritis
     Route: 048
  142. LEFLUNOMIDE [Suspect]
     Active Substance: LEFLUNOMIDE
     Route: 048
  143. LEFLUNOMIDE [Suspect]
     Active Substance: LEFLUNOMIDE
     Indication: Rheumatoid arthritis
     Route: 048
  144. LEFLUNOMIDE [Suspect]
     Active Substance: LEFLUNOMIDE
     Indication: Rheumatoid arthritis
     Route: 048
  145. METHOTREXATE [Suspect]
     Active Substance: METHOTREXATE
     Indication: Rheumatoid arthritis
     Dosage: 20 MG, 1 EVERY 2 WEEKS
     Route: 048
  146. METHOTREXATE [Suspect]
     Active Substance: METHOTREXATE
     Dosage: 25 MG, 1 EVERY 2 WEEKS
     Route: 048
  147. METHOTREXATE [Suspect]
     Active Substance: METHOTREXATE
     Route: 048
  148. METHOTREXATE [Suspect]
     Active Substance: METHOTREXATE
     Route: 048
  149. METHOTREXATE [Suspect]
     Active Substance: METHOTREXATE
     Dosage: 20 MG, 1 EVERY 1 WEEKS
     Route: 048
  150. METHOTREXATE [Suspect]
     Active Substance: METHOTREXATE
     Route: 048
  151. METHOTREXATE [Suspect]
     Active Substance: METHOTREXATE
     Dosage: 25 MG, 1 EVERY 2 WEEKS
     Route: 048
  152. METHOTREXATE [Suspect]
     Active Substance: METHOTREXATE
     Route: 048
  153. METHOTREXATE [Suspect]
     Active Substance: METHOTREXATE
     Dosage: 20 MG, 1 EVERY 1 WEEKS
     Route: 048
  154. METHOTREXATE [Suspect]
     Active Substance: METHOTREXATE
     Dosage: 20 MG, 1 EVERY 1 WEEKS
     Route: 048
  155. METHOTREXATE [Suspect]
     Active Substance: METHOTREXATE
     Dosage: 20 MG, 1 EVERY 1 WEEKS
     Route: 048
  156. METHOTREXATE [Suspect]
     Active Substance: METHOTREXATE
     Dosage: 25 MG, 1 EVERY 1 WEEKS
     Route: 048
  157. METHOTREXATE [Suspect]
     Active Substance: METHOTREXATE
     Dosage: 25 MG, 1 EVERY 2 WEEKS
     Route: 048
  158. METHOTREXATE [Suspect]
     Active Substance: METHOTREXATE
     Route: 048
  159. METHOTREXATE [Suspect]
     Active Substance: METHOTREXATE
     Dosage: 20 MG,1 EVERY 1 WEEKS
     Route: 048
  160. METHOTREXATE [Suspect]
     Active Substance: METHOTREXATE
     Dosage: 25 MG, 1 EVERY 1 WEEKS
     Route: 065
  161. METHOTREXATE [Suspect]
     Active Substance: METHOTREXATE
     Dosage: 25 MG, 1 EVERY 1 WEEKS
     Route: 048
  162. METHOTREXATE [Suspect]
     Active Substance: METHOTREXATE
     Dosage: 20 MG, 1 EVERY 1 WEEKS
     Route: 048
  163. METHOTREXATE [Suspect]
     Active Substance: METHOTREXATE
     Dosage: 25 MG, 1 EVERY 2 WEEKS
     Route: 048
  164. METHOTREXATE [Suspect]
     Active Substance: METHOTREXATE
     Route: 048
  165. METHOTREXATE [Suspect]
     Active Substance: METHOTREXATE
     Dosage: 25 MG, 1 EVERY 1 WEEKS
     Route: 048
  166. METHOTREXATE [Suspect]
     Active Substance: METHOTREXATE
     Route: 048
  167. METHOTREXATE [Suspect]
     Active Substance: METHOTREXATE
     Dosage: 20.0 MILLIGRAM, 2 EVERY 1 WEEK
     Route: 048
  168. METHOTREXATE [Suspect]
     Active Substance: METHOTREXATE
     Dosage: 20.0 MILLIGRAM, 1 EVERY 2 WEEKS
     Route: 048
  169. METHOTREXATE [Suspect]
     Active Substance: METHOTREXATE
     Route: 048
  170. METHOTREXATE [Suspect]
     Active Substance: METHOTREXATE
     Route: 065
  171. METHOTREXATE [Suspect]
     Active Substance: METHOTREXATE
     Dosage: 20 MICROGRAM, 1 EVERY 1 WEEK
     Route: 014
  172. METHOTREXATE [Suspect]
     Active Substance: METHOTREXATE
     Route: 048
  173. METHOTREXATE [Suspect]
     Active Substance: METHOTREXATE
     Dosage: 25 MG, 1 EVERY 1 WEEKS
     Route: 048
  174. METHOTREXATE [Suspect]
     Active Substance: METHOTREXATE
     Dosage: 25 MG, 1 EVERY 1 WEEKS
     Route: 048
  175. METHOTREXATE [Suspect]
     Active Substance: METHOTREXATE
     Indication: Rheumatoid arthritis
     Dosage: 20.0 MILLIGRAM, 1 EVERY 1 WEEK
     Route: 065
  176. METHOTREXATE [Suspect]
     Active Substance: METHOTREXATE
     Dosage: 25.0 MILLIGRAM, 1 EVERY 1 WEEK
     Route: 048
  177. METHOTREXATE [Suspect]
     Active Substance: METHOTREXATE
     Dosage: 25.0 MICROGRAM, 1 EVERY 1 WEEK
     Route: 014
  178. METHOTREXATE [Suspect]
     Active Substance: METHOTREXATE
     Dosage: 20 MICROGRAM, 1 EVERY 1 WEEK
     Route: 014
  179. METHOTREXATE [Suspect]
     Active Substance: METHOTREXATE
     Indication: Product used for unknown indication
     Dosage: 25.0 MILLIGRAM, 1 EVERY .5 WEEK
  180. MOXIFLOXACIN HYDROCHLORIDE [Suspect]
     Active Substance: MOXIFLOXACIN HYDROCHLORIDE
     Indication: Rheumatoid arthritis
     Route: 058
  181. NAPROSYN [Suspect]
     Active Substance: NAPROXEN
     Indication: Product used for unknown indication
     Route: 048
  182. NAPROSYN [Suspect]
     Active Substance: NAPROXEN
     Route: 048
  183. NAPROSYN [Suspect]
     Active Substance: NAPROXEN
     Route: 065
  184. NAPROSYN [Suspect]
     Active Substance: NAPROXEN
     Route: 048
  185. NAPROSYN [Suspect]
     Active Substance: NAPROXEN
     Route: 048
  186. NAPROSYN [Suspect]
     Active Substance: NAPROXEN
     Route: 065
  187. NAPROSYN [Suspect]
     Active Substance: NAPROXEN
     Route: 048
  188. NAPROSYN [Suspect]
     Active Substance: NAPROXEN
     Indication: Uveitis
     Route: 048
  189. NAPROSYN [Suspect]
     Active Substance: NAPROXEN
     Indication: Juvenile idiopathic arthritis
     Route: 048
  190. NAPROSYN [Suspect]
     Active Substance: NAPROXEN
     Indication: Rheumatoid arthritis
     Route: 048
  191. NAPROSYN [Suspect]
     Active Substance: NAPROXEN
     Route: 048
  192. NAPROSYN [Suspect]
     Active Substance: NAPROXEN
     Route: 048
  193. NAPROSYN [Suspect]
     Active Substance: NAPROXEN
     Route: 048
  194. NAPROSYN [Suspect]
     Active Substance: NAPROXEN
     Route: 048
  195. NAPROSYN [Suspect]
     Active Substance: NAPROXEN
     Route: 048
  196. NAPROSYN [Suspect]
     Active Substance: NAPROXEN
     Route: 048
  197. NAPROSYN [Suspect]
     Active Substance: NAPROXEN
     Route: 048
  198. NAPROXEN [Suspect]
     Active Substance: NAPROXEN
     Indication: Product used for unknown indication
     Route: 048
  199. NAPROXEN [Suspect]
     Active Substance: NAPROXEN
     Route: 048
  200. NAPROXEN [Suspect]
     Active Substance: NAPROXEN
     Route: 048
  201. NAPROXEN [Suspect]
     Active Substance: NAPROXEN
     Route: 065
  202. NAPROXEN [Suspect]
     Active Substance: NAPROXEN
     Indication: Product used for unknown indication
     Route: 048
  203. NAPROXEN [Suspect]
     Active Substance: NAPROXEN
     Route: 048
  204. NAPROXEN [Suspect]
     Active Substance: NAPROXEN
     Indication: Product used for unknown indication
     Route: 048
  205. NAPROXEN [Suspect]
     Active Substance: NAPROXEN
     Route: 048
  206. NAPROXEN [Suspect]
     Active Substance: NAPROXEN
     Route: 048
  207. NAPROXEN [Suspect]
     Active Substance: NAPROXEN
     Indication: Uveitis
     Route: 065
  208. NAPROXEN [Suspect]
     Active Substance: NAPROXEN
     Indication: Juvenile idiopathic arthritis
     Route: 048
  209. NAPROXEN [Suspect]
     Active Substance: NAPROXEN
     Indication: Rheumatoid arthritis
  210. NAPROXEN [Suspect]
     Active Substance: NAPROXEN
     Indication: Uveitis
     Route: 048
  211. NAPROXEN [Suspect]
     Active Substance: NAPROXEN
     Indication: Juvenile idiopathic arthritis
     Route: 048
  212. NAPROXEN [Suspect]
     Active Substance: NAPROXEN
     Route: 048
  213. NAPROXEN [Suspect]
     Active Substance: NAPROXEN
     Route: 048
  214. NAPROXEN [Suspect]
     Active Substance: NAPROXEN
     Route: 048
  215. NAPROXEN [Suspect]
     Active Substance: NAPROXEN
     Route: 048
  216. NAPROXEN [Suspect]
     Active Substance: NAPROXEN
     Route: 048
  217. NAPROXEN [Suspect]
     Active Substance: NAPROXEN
     Indication: Uveitis
     Route: 048
  218. NAPROXEN [Suspect]
     Active Substance: NAPROXEN
     Indication: Juvenile idiopathic arthritis
     Route: 048
  219. NAPROXEN [Suspect]
     Active Substance: NAPROXEN
     Indication: Rheumatoid arthritis
     Route: 048
  220. NAPROXEN [Suspect]
     Active Substance: NAPROXEN
     Route: 048
  221. NAPROXEN [Suspect]
     Active Substance: NAPROXEN
     Route: 048
  222. NAPROXEN [Suspect]
     Active Substance: NAPROXEN
     Route: 048
  223. NAPROXEN [Suspect]
     Active Substance: NAPROXEN
     Route: 048
  224. NAPROXEN [Suspect]
     Active Substance: NAPROXEN
     Route: 048
  225. NAPROXEN [Suspect]
     Active Substance: NAPROXEN
     Route: 048
  226. NAPROXEN [Suspect]
     Active Substance: NAPROXEN
     Route: 048
  227. NAPROXEN [Suspect]
     Active Substance: NAPROXEN
     Route: 065
  228. NAPROXEN [Suspect]
     Active Substance: NAPROXEN
     Route: 065
  229. NAPROXEN [Suspect]
     Active Substance: NAPROXEN
     Route: 048
  230. NAPROXEN [Suspect]
     Active Substance: NAPROXEN
     Route: 048
  231. NAPROXEN [Suspect]
     Active Substance: NAPROXEN
     Route: 048
  232. NAPROXEN [Suspect]
     Active Substance: NAPROXEN
     Route: 048
  233. NAPROXEN [Suspect]
     Active Substance: NAPROXEN
     Route: 048
  234. NAPROXEN [Suspect]
     Active Substance: NAPROXEN
     Route: 048
  235. NAPROXEN SODIUM [Suspect]
     Active Substance: NAPROXEN SODIUM
     Indication: Product used for unknown indication
     Route: 048
  236. NAPROXEN SODIUM [Suspect]
     Active Substance: NAPROXEN SODIUM
     Route: 048
  237. NAPROXEN SODIUM [Suspect]
     Active Substance: NAPROXEN SODIUM
     Route: 048
  238. NAPROXEN SODIUM [Suspect]
     Active Substance: NAPROXEN SODIUM
     Route: 048
  239. NAPROXEN SODIUM [Suspect]
     Active Substance: NAPROXEN SODIUM
     Indication: Product used for unknown indication
     Route: 048
  240. NAPROXEN SODIUM [Suspect]
     Active Substance: NAPROXEN SODIUM
     Route: 065
  241. NAPROXEN SODIUM [Suspect]
     Active Substance: NAPROXEN SODIUM
     Route: 065
  242. NAPROXEN SODIUM [Suspect]
     Active Substance: NAPROXEN SODIUM
     Indication: Product used for unknown indication
     Route: 065
  243. NAPROXEN SODIUM [Suspect]
     Active Substance: NAPROXEN SODIUM
     Route: 048
  244. NAPROXEN SODIUM [Suspect]
     Active Substance: NAPROXEN SODIUM
     Route: 048
  245. NAPROXEN SODIUM [Suspect]
     Active Substance: NAPROXEN SODIUM
     Route: 065
  246. NAPROXEN SODIUM [Suspect]
     Active Substance: NAPROXEN SODIUM
     Route: 048
  247. NAPROXEN SODIUM [Suspect]
     Active Substance: NAPROXEN SODIUM
     Route: 048
  248. NAPROXEN SODIUM [Suspect]
     Active Substance: NAPROXEN SODIUM
     Route: 048
  249. NAPROXEN SODIUM [Suspect]
     Active Substance: NAPROXEN SODIUM
     Route: 065
  250. NAPROXEN SODIUM [Suspect]
     Active Substance: NAPROXEN SODIUM
     Route: 048
  251. NAPROXEN SODIUM [Suspect]
     Active Substance: NAPROXEN SODIUM
     Route: 048
  252. NAPROXEN SODIUM [Suspect]
     Active Substance: NAPROXEN SODIUM
     Route: 065
  253. NAPROXEN SODIUM [Suspect]
     Active Substance: NAPROXEN SODIUM
     Route: 048
  254. NAPROXEN SODIUM [Suspect]
     Active Substance: NAPROXEN SODIUM
     Route: 065
  255. NAPROXEN SODIUM [Suspect]
     Active Substance: NAPROXEN SODIUM
     Indication: Rheumatoid arthritis
     Route: 048
  256. NAPROXEN SODIUM [Suspect]
     Active Substance: NAPROXEN SODIUM
     Route: 048
  257. NAPROXEN SODIUM [Suspect]
     Active Substance: NAPROXEN SODIUM
     Route: 048
  258. NAPROXEN SODIUM [Suspect]
     Active Substance: NAPROXEN SODIUM
     Route: 065
  259. NAPROXEN SODIUM [Suspect]
     Active Substance: NAPROXEN SODIUM
     Route: 048
  260. NAPROXEN SODIUM [Suspect]
     Active Substance: NAPROXEN SODIUM
     Route: 048
  261. NAPROXEN SODIUM [Suspect]
     Active Substance: NAPROXEN SODIUM
     Route: 065
  262. NAPROXEN SODIUM [Suspect]
     Active Substance: NAPROXEN SODIUM
     Route: 048
  263. NAPROXEN SODIUM [Suspect]
     Active Substance: NAPROXEN SODIUM
     Route: 048
  264. NAPROXEN SODIUM [Suspect]
     Active Substance: NAPROXEN SODIUM
     Route: 048
  265. ORENCIA [Suspect]
     Active Substance: ABATACEPT
     Indication: Rheumatoid arthritis
     Route: 042
  266. ORENCIA [Suspect]
     Active Substance: ABATACEPT
     Route: 042
  267. ORENCIA [Suspect]
     Active Substance: ABATACEPT
     Route: 065
  268. ORENCIA [Suspect]
     Active Substance: ABATACEPT
     Route: 065
  269. ORENCIA [Suspect]
     Active Substance: ABATACEPT
     Route: 065
  270. ORENCIA [Suspect]
     Active Substance: ABATACEPT
     Route: 042
  271. ORENCIA [Suspect]
     Active Substance: ABATACEPT
     Indication: Rheumatoid arthritis
     Route: 065
  272. ORENCIA [Suspect]
     Active Substance: ABATACEPT
     Indication: Rheumatoid arthritis
     Route: 065
  273. ORENCIA [Suspect]
     Active Substance: ABATACEPT
     Indication: Rheumatoid arthritis
     Route: 065
  274. ORENCIA [Suspect]
     Active Substance: ABATACEPT
     Route: 065
  275. ORENCIA [Suspect]
     Active Substance: ABATACEPT
     Route: 065
  276. ORENCIA [Suspect]
     Active Substance: ABATACEPT
     Route: 042
  277. ORENCIA [Suspect]
     Active Substance: ABATACEPT
     Route: 042
  278. FERROUS FUMARATE [Suspect]
     Active Substance: FERROUS FUMARATE
     Indication: Product used for unknown indication
     Route: 065
  279. ASCORBIC ACID\FERROUS FUMARATE\FOLIC ACID [Suspect]
     Active Substance: ASCORBIC ACID\FERROUS FUMARATE\FOLIC ACID
     Indication: Product used for unknown indication
     Route: 065
  280. ASCORBIC ACID\FERROUS FUMARATE\FOLIC ACID [Suspect]
     Active Substance: ASCORBIC ACID\FERROUS FUMARATE\FOLIC ACID
     Route: 065
  281. ASCORBIC ACID\FERROUS FUMARATE\FOLIC ACID [Suspect]
     Active Substance: ASCORBIC ACID\FERROUS FUMARATE\FOLIC ACID
     Route: 065
  282. PANTOPRAZOLE SODIUM [Suspect]
     Active Substance: PANTOPRAZOLE SODIUM
     Indication: Rheumatoid arthritis
     Route: 065
  283. PANTOPRAZOLE SODIUM [Suspect]
     Active Substance: PANTOPRAZOLE SODIUM
     Route: 065
  284. PANTOPRAZOLE SODIUM [Suspect]
     Active Substance: PANTOPRAZOLE SODIUM
     Route: 065
  285. PANTOPRAZOLE SODIUM [Suspect]
     Active Substance: PANTOPRAZOLE SODIUM
     Route: 065
  286. PANTOPRAZOLE SODIUM [Suspect]
     Active Substance: PANTOPRAZOLE SODIUM
     Route: 065
  287. PANTOPRAZOLE SODIUM [Suspect]
     Active Substance: PANTOPRAZOLE SODIUM
     Indication: Rheumatoid arthritis
     Route: 048
  288. PANTOPRAZOLE SODIUM [Suspect]
     Active Substance: PANTOPRAZOLE SODIUM
     Route: 065
  289. PANTOPRAZOLE SODIUM [Suspect]
     Active Substance: PANTOPRAZOLE SODIUM
     Route: 065
  290. PANTOPRAZOLE [Suspect]
     Active Substance: PANTOPRAZOLE
     Indication: Rheumatoid arthritis
     Route: 065
  291. PANTOPRAZOLE [Suspect]
     Active Substance: PANTOPRAZOLE
     Route: 048
  292. PANTOPRAZOLE [Suspect]
     Active Substance: PANTOPRAZOLE
     Route: 065
  293. PANTOPRAZOLE [Suspect]
     Active Substance: PANTOPRAZOLE
     Route: 065
  294. PANTOPRAZOLE [Suspect]
     Active Substance: PANTOPRAZOLE
     Route: 048
  295. PANTOPRAZOLE [Suspect]
     Active Substance: PANTOPRAZOLE
     Indication: Rheumatoid arthritis
     Route: 048
  296. PANTOPRAZOLE [Suspect]
     Active Substance: PANTOPRAZOLE
     Route: 065
  297. PANTOPRAZOLE [Suspect]
     Active Substance: PANTOPRAZOLE
     Indication: Rheumatoid arthritis
     Route: 048
  298. PANTOPRAZOLE [Suspect]
     Active Substance: PANTOPRAZOLE
     Route: 065
  299. PANTOPRAZOLE [Suspect]
     Active Substance: PANTOPRAZOLE
     Route: 065
  300. PANTOPRAZOLE [Suspect]
     Active Substance: PANTOPRAZOLE
     Route: 048
  301. PANTOPRAZOLE [Suspect]
     Active Substance: PANTOPRAZOLE
     Route: 048
  302. PANTOPRAZOLE [Suspect]
     Active Substance: PANTOPRAZOLE
     Route: 048
  303. PANTOPRAZOLE SODIUM [Suspect]
     Active Substance: PANTOPRAZOLE SODIUM
     Indication: Product used for unknown indication
     Route: 065
  304. PANTOPRAZOLE SODIUM [Suspect]
     Active Substance: PANTOPRAZOLE SODIUM
     Route: 065
  305. PANTOPRAZOLE SODIUM [Suspect]
     Active Substance: PANTOPRAZOLE SODIUM
     Route: 065
  306. PANTOPRAZOLE SODIUM [Suspect]
     Active Substance: PANTOPRAZOLE SODIUM
     Indication: Rheumatoid arthritis
     Route: 065
  307. PANTOPRAZOLE SODIUM [Suspect]
     Active Substance: PANTOPRAZOLE SODIUM
     Route: 065
  308. PANTOPRAZOLE SODIUM [Suspect]
     Active Substance: PANTOPRAZOLE SODIUM
     Route: 065
  309. PANTOPRAZOLE SODIUM [Suspect]
     Active Substance: PANTOPRAZOLE SODIUM
     Route: 065
  310. PANTOPRAZOLE SODIUM [Suspect]
     Active Substance: PANTOPRAZOLE SODIUM
     Route: 065
  311. PANTOPRAZOLE SODIUM [Suspect]
     Active Substance: PANTOPRAZOLE SODIUM
     Route: 065
  312. PANTOPRAZOLE SODIUM [Suspect]
     Active Substance: PANTOPRAZOLE SODIUM
     Route: 065
  313. PANTOPRAZOLE SODIUM [Suspect]
     Active Substance: PANTOPRAZOLE SODIUM
     Route: 048
  314. PANTOPRAZOLE SODIUM [Suspect]
     Active Substance: PANTOPRAZOLE SODIUM
     Indication: Rheumatoid arthritis
     Route: 048
  315. PANTOPRAZOLE SODIUM [Suspect]
     Active Substance: PANTOPRAZOLE SODIUM
     Route: 048
  316. PANTOPRAZOLE SODIUM [Suspect]
     Active Substance: PANTOPRAZOLE SODIUM
     Route: 048
  317. PANTOPRAZOLE SODIUM [Suspect]
     Active Substance: PANTOPRAZOLE SODIUM
     Route: 048
  318. PANTOPRAZOLE SODIUM [Suspect]
     Active Substance: PANTOPRAZOLE SODIUM
     Route: 048
  319. PANTOPRAZOLE SODIUM [Suspect]
     Active Substance: PANTOPRAZOLE SODIUM
     Route: 065
  320. PANTOPRAZOLE SODIUM [Suspect]
     Active Substance: PANTOPRAZOLE SODIUM
     Route: 065
  321. PANTOPRAZOLE SODIUM [Suspect]
     Active Substance: PANTOPRAZOLE SODIUM
     Route: 065
  322. PANTOPRAZOLE SODIUM [Suspect]
     Active Substance: PANTOPRAZOLE SODIUM
     Route: 065
  323. PANTOPRAZOLE SODIUM [Suspect]
     Active Substance: PANTOPRAZOLE SODIUM
     Indication: Product used for unknown indication
     Route: 065
  324. PANTOPRAZOLE SODIUM [Suspect]
     Active Substance: PANTOPRAZOLE SODIUM
     Indication: Product used for unknown indication
     Route: 065
  325. PANTOPRAZOLE SODIUM [Suspect]
     Active Substance: PANTOPRAZOLE SODIUM
     Route: 048
  326. PANTOPRAZOLE SODIUM [Suspect]
     Active Substance: PANTOPRAZOLE SODIUM
     Route: 065
  327. PANTOPRAZOLE SODIUM [Suspect]
     Active Substance: PANTOPRAZOLE SODIUM
     Route: 065
  328. PANTOPRAZOLE SODIUM [Suspect]
     Active Substance: PANTOPRAZOLE SODIUM
     Route: 065
  329. PANTOPRAZOLE SODIUM ANHYDROUS [Suspect]
     Active Substance: PANTOPRAZOLE SODIUM ANHYDROUS
     Indication: Product used for unknown indication
     Route: 065
  330. PLAQUENIL [Suspect]
     Active Substance: HYDROXYCHLOROQUINE SULFATE
     Indication: Product used for unknown indication
     Route: 065
  331. PLAQUENIL [Suspect]
     Active Substance: HYDROXYCHLOROQUINE SULFATE
     Route: 065
  332. PLAQUENIL [Suspect]
     Active Substance: HYDROXYCHLOROQUINE SULFATE
     Route: 065
  333. PLAQUENIL [Suspect]
     Active Substance: HYDROXYCHLOROQUINE SULFATE
     Route: 065
  334. PLAQUENIL [Suspect]
     Active Substance: HYDROXYCHLOROQUINE SULFATE
     Route: 065
  335. PLAQUENIL [Suspect]
     Active Substance: HYDROXYCHLOROQUINE SULFATE
     Route: 065
  336. PLAQUENIL [Suspect]
     Active Substance: HYDROXYCHLOROQUINE SULFATE
     Route: 065
  337. PLAQUENIL [Suspect]
     Active Substance: HYDROXYCHLOROQUINE SULFATE
     Route: 065
  338. PREDNISONE [Suspect]
     Active Substance: PREDNISONE
     Indication: Rheumatoid arthritis
     Route: 065
  339. REMICADE [Suspect]
     Active Substance: INFLIXIMAB
     Indication: Product used for unknown indication
     Route: 042
  340. REMICADE [Suspect]
     Active Substance: INFLIXIMAB
     Route: 041
  341. REMICADE [Suspect]
     Active Substance: INFLIXIMAB
     Route: 065
  342. REMICADE [Suspect]
     Active Substance: INFLIXIMAB
     Route: 042
  343. REMICADE [Suspect]
     Active Substance: INFLIXIMAB
     Route: 042
  344. SULFASALAZINE [Suspect]
     Active Substance: SULFASALAZINE
     Indication: Rheumatoid arthritis
     Route: 048
  345. SULFASALAZINE [Suspect]
     Active Substance: SULFASALAZINE
     Route: 048
  346. SULFASALAZINE [Suspect]
     Active Substance: SULFASALAZINE
     Route: 048
  347. SULFASALAZINE [Suspect]
     Active Substance: SULFASALAZINE
     Route: 048
  348. SULFASALAZINE [Suspect]
     Active Substance: SULFASALAZINE
     Route: 065
  349. SULFASALAZINE [Suspect]
     Active Substance: SULFASALAZINE
     Route: 048
  350. SULFASALAZINE [Suspect]
     Active Substance: SULFASALAZINE
     Route: 065
  351. SULFASALAZINE [Suspect]
     Active Substance: SULFASALAZINE
     Route: 048
  352. SULFASALAZINE [Suspect]
     Active Substance: SULFASALAZINE
     Indication: Rheumatoid arthritis
     Route: 048
  353. SULFASALAZINE [Suspect]
     Active Substance: SULFASALAZINE
     Route: 048
  354. SULFASALAZINE [Suspect]
     Active Substance: SULFASALAZINE
     Route: 048
  355. TOCILIZUMAB [Suspect]
     Active Substance: TOCILIZUMAB
     Indication: Rheumatoid arthritis
     Route: 065
  356. VITAMIN C [Suspect]
     Active Substance: ASCORBIC ACID
     Indication: Product used for unknown indication
     Route: 065
  357. VITAMIN C [Suspect]
     Active Substance: ASCORBIC ACID
     Route: 065
  358. VITAMIN C [Suspect]
     Active Substance: ASCORBIC ACID
     Indication: Product used for unknown indication
     Route: 065
  359. VITAMIN C [Suspect]
     Active Substance: ASCORBIC ACID
     Route: 065
  360. VITAMIN C [Suspect]
     Active Substance: ASCORBIC ACID
     Route: 065
  361. VITAMIN C [Suspect]
     Active Substance: ASCORBIC ACID
     Route: 065
  362. VITAMIN C [Suspect]
     Active Substance: ASCORBIC ACID
     Route: 065
  363. VITAMIN C [Suspect]
     Active Substance: ASCORBIC ACID
     Route: 065
  364. VITAMIN C [Suspect]
     Active Substance: ASCORBIC ACID
     Indication: Product used for unknown indication
     Route: 065
  365. VITAMIN C [Suspect]
     Active Substance: ASCORBIC ACID
     Route: 065
  366. VITAMIN C [Suspect]
     Active Substance: ASCORBIC ACID
     Indication: Product used for unknown indication
     Route: 065
  367. XELJANZ [Suspect]
     Active Substance: TOFACITINIB CITRATE
     Indication: Rheumatoid arthritis
     Route: 065
  368. ASPIRIN [Concomitant]
     Active Substance: ASPIRIN
     Route: 065
  369. AVAPRO [Concomitant]
     Active Substance: IRBESARTAN
     Route: 065
  370. CELEBREX [Concomitant]
     Active Substance: CELECOXIB
     Indication: Rheumatoid arthritis
     Route: 048
  371. CELEBREX [Concomitant]
     Active Substance: CELECOXIB
     Route: 048
  372. CELEBREX [Concomitant]
     Active Substance: CELECOXIB
     Route: 048
  373. CELEBREX [Concomitant]
     Active Substance: CELECOXIB
     Route: 048
  374. CELECOXIB [Concomitant]
     Active Substance: CELECOXIB
     Indication: Rheumatoid arthritis
     Route: 048
  375. CELECOXIB [Concomitant]
     Active Substance: CELECOXIB
     Route: 048
  376. CELECOXIB [Concomitant]
     Active Substance: CELECOXIB
     Route: 065
  377. CELECOXIB [Concomitant]
     Active Substance: CELECOXIB
     Route: 048
  378. CELECOXIB [Concomitant]
     Active Substance: CELECOXIB
     Route: 048
  379. CELECOXIB [Concomitant]
     Active Substance: CELECOXIB
     Route: 065
  380. HUMALOG [Concomitant]
     Active Substance: INSULIN LISPRO
  381. HUMALOG [Concomitant]
     Active Substance: INSULIN LISPRO
  382. INSULIN PORK [Concomitant]
     Active Substance: INSULIN PORK\INSULIN PURIFIED PORK
  383. INSULIN PORK [Concomitant]
     Active Substance: INSULIN PORK\INSULIN PURIFIED PORK
     Route: 065
  384. LANTUS [Concomitant]
     Active Substance: INSULIN GLARGINE
  385. METFORMIN HYDROCHLORIDE [Concomitant]
     Active Substance: METFORMIN HYDROCHLORIDE
  386. PREDNISONE [Concomitant]
     Active Substance: PREDNISONE
     Indication: Rheumatoid arthritis
     Route: 065
  387. PREDNISONE [Concomitant]
     Active Substance: PREDNISONE
     Route: 065
  388. PREDNISONE [Concomitant]
     Active Substance: PREDNISONE
     Route: 065
  389. PREDNISONE [Concomitant]
     Active Substance: PREDNISONE
     Indication: Rheumatoid arthritis
     Route: 065
  390. SIMPONI [Concomitant]
     Active Substance: GOLIMUMAB
     Route: 065

REACTIONS (38)
  - C-reactive protein abnormal [Not Recovered/Not Resolved]
  - C-reactive protein increased [Not Recovered/Not Resolved]
  - Disability [Not Recovered/Not Resolved]
  - Haematocrit decreased [Not Recovered/Not Resolved]
  - Haemoglobin decreased [Not Recovered/Not Resolved]
  - Joint swelling [Not Recovered/Not Resolved]
  - Red blood cell sedimentation rate abnormal [Not Recovered/Not Resolved]
  - Rheumatoid arthritis [Not Recovered/Not Resolved]
  - Arthropathy [Not Recovered/Not Resolved]
  - Inflammatory marker increased [Not Recovered/Not Resolved]
  - Drug intolerance [Not Recovered/Not Resolved]
  - Fall [Not Recovered/Not Resolved]
  - Femur fracture [Not Recovered/Not Resolved]
  - Multiple fractures [Not Recovered/Not Resolved]
  - Osteoporosis [Not Recovered/Not Resolved]
  - Synovitis [Not Recovered/Not Resolved]
  - Condition aggravated [Not Recovered/Not Resolved]
  - Musculoskeletal stiffness [Not Recovered/Not Resolved]
  - Myalgia [Not Recovered/Not Resolved]
  - Rheumatoid lung [Not Recovered/Not Resolved]
  - Drug-induced liver injury [Not Recovered/Not Resolved]
  - Impaired healing [Not Recovered/Not Resolved]
  - Keratitis [Not Recovered/Not Resolved]
  - Drug hypersensitivity [Not Recovered/Not Resolved]
  - Hypersensitivity [Not Recovered/Not Resolved]
  - Arthralgia [Not Recovered/Not Resolved]
  - Musculoskeletal pain [Not Recovered/Not Resolved]
  - Pain in extremity [Not Recovered/Not Resolved]
  - Peripheral swelling [Not Recovered/Not Resolved]
  - Rash [Not Recovered/Not Resolved]
  - Red blood cell count decreased [Not Recovered/Not Resolved]
  - Fatigue [Not Recovered/Not Resolved]
  - Pain [Not Recovered/Not Resolved]
  - Liver disorder [Not Recovered/Not Resolved]
  - Contraindicated product administered [Not Recovered/Not Resolved]
  - Drug ineffective [Not Recovered/Not Resolved]
  - Off label use [Not Recovered/Not Resolved]
  - Treatment failure [Not Recovered/Not Resolved]
